FAERS Safety Report 8072236-2 (Version None)
Quarter: 2012Q1

REPORT INFORMATION
  Report Type: 
  Country: None (occurrence: None)
  Receive Date: 20120126
  Receipt Date: 20120119
  Transmission Date: 20120608
  Serious: No
  Sender: FDA-Public Use
  Company Number: US-PFIZER INC-2012016622

PATIENT
  Sex: Female

DRUGS (8)
  1. EFFEXOR [Suspect]
     Indication: DEPRESSION
     Dosage: 75 MG, 1X/DAY
     Dates: end: 20120113
  2. HYDROCHLOROTHIAZIDE [Concomitant]
     Indication: HYPERTENSION
     Dosage: UNK
  3. AMLODIPINE [Concomitant]
     Indication: HYPERTENSION
     Dosage: UNK
  4. EFFEXOR [Suspect]
     Indication: PANIC ATTACK
  5. NEURONTIN [Suspect]
     Indication: CARPAL TUNNEL SYNDROME
  6. NEURONTIN [Suspect]
     Indication: SLEEP DISORDER
     Dosage: 300 MG, 2X/DAY
     Dates: end: 20120113
  7. EFFEXOR [Suspect]
     Indication: ANXIETY
  8. ATENOLOL [Concomitant]
     Indication: HYPERTENSION
     Dosage: UNK

REACTIONS (6)
  - ASTHENIA [None]
  - DEPRESSION [None]
  - VOMITING [None]
  - CONFUSIONAL STATE [None]
  - DIZZINESS [None]
  - TEARFULNESS [None]
